FAERS Safety Report 7779284-8 (Version None)
Quarter: 2011Q3

REPORT INFORMATION
  Report Type: 
  Country: None (occurrence: None)
  Receive Date: 20110926
  Receipt Date: 20110915
  Transmission Date: 20111222
  Serious: Yes (Hospitalization, Other)
  Sender: FDA-Public Use
  Company Number: US-ASTRAZENECA-2011SE50758

PATIENT
  Age: 49 Year
  Sex: Male

DRUGS (1)
  1. CRESTOR [Suspect]
     Route: 048

REACTIONS (8)
  - ABDOMINAL DISCOMFORT [None]
  - INTESTINAL OBSTRUCTION [None]
  - PAIN [None]
  - HERNIA [None]
  - PULMONARY OEDEMA [None]
  - RIB FRACTURE [None]
  - INTERVERTEBRAL DISC PROTRUSION [None]
  - INTESTINAL PERFORATION [None]
